FAERS Safety Report 16554730 (Version 4)
Quarter: 2019Q3

REPORT INFORMATION
  Report Type: Spontaneous
  Country: US (occurrence: US)
  Receive Date: 20190710
  Receipt Date: 20190711
  Transmission Date: 20191004
  Serious: Yes (Hospitalization)
  Sender: FDA-Public Use
  Company Number: US-BAYER-2019-126564

PATIENT
  Age: 77 Year
  Sex: Female
  Weight: 54 kg

DRUGS (5)
  1. MIRALAX [Suspect]
     Active Substance: POLYETHYLENE GLYCOL 3350
     Indication: GASTROINTESTINAL DISORDER
     Dosage: 17 G
     Route: 048
     Dates: start: 20180623
  2. MIRALAX [Suspect]
     Active Substance: POLYETHYLENE GLYCOL 3350
     Indication: CONSTIPATION
  3. SODIUM [Concomitant]
     Active Substance: SODIUM
     Dosage: 1 G, BID
  4. ELECTROLYTE SOLUTIONS [ELECTROLYTES NOS] [Concomitant]
     Route: 048
  5. LISINOPRIL. [Suspect]
     Active Substance: LISINOPRIL
     Indication: CHEST PAIN
     Dosage: UNK, BID

REACTIONS (6)
  - Muscle spasms [Unknown]
  - Blood electrolytes decreased [Unknown]
  - Facial paresis [Unknown]
  - Off label use [Unknown]
  - Product use in unapproved indication [Unknown]
  - Muscular weakness [None]

NARRATIVE: CASE EVENT DATE: 201806
